FAERS Safety Report 10246487 (Version 2)
Quarter: 2014Q2

REPORT INFORMATION
  Report Type: Report from Study
  Country: US (occurrence: US)
  Receive Date: 20140619
  Receipt Date: 20140626
  Transmission Date: 20141212
  Serious: Yes (Death, Other)
  Sender: FDA-Public Use
  Company Number: US-BAYER-2014-088358

PATIENT
  Age: 31 Year
  Sex: Male

DRUGS (1)
  1. NEXAVAR/SORAFENIB [Suspect]
     Indication: RENAL CELL CARCINOMA
     Dosage: 400 MG, BID (TOTAL DAILY DOSE: 800MG, 2X200MG BID)
     Route: 048
     Dates: start: 20140604

REACTIONS (4)
  - Hallucination [None]
  - Vomiting [None]
  - Haematemesis [None]
  - Death [Fatal]
